FAERS Safety Report 24938970 (Version 2)
Quarter: 2025Q1

REPORT INFORMATION
  Report Type: Spontaneous
  Country: US (occurrence: US)
  Receive Date: 20250206
  Receipt Date: 20250301
  Transmission Date: 20250409
  Serious: No
  Sender: SANOFI AVENTIS
  Company Number: US-SANOFI-02398188

PATIENT
  Age: 56 Year
  Sex: Male

DRUGS (9)
  1. DUPIXENT [Suspect]
     Active Substance: DUPILUMAB
     Dosage: 300 MG, QOW
     Route: 058
  2. SIMPONI [Concomitant]
     Active Substance: GOLIMUMAB
  3. EZETIMIBE [Concomitant]
     Active Substance: EZETIMIBE
  4. REPATHA [Concomitant]
     Active Substance: EVOLOCUMAB
  5. DOXEPIN [Concomitant]
     Active Substance: DOXEPIN
  6. ICOSAPENT ETHYL [Concomitant]
     Active Substance: ICOSAPENT ETHYL
  7. CANDESARTAN CILEXETIL [Concomitant]
     Active Substance: CANDESARTAN CILEXETIL
  8. QUVIVIQ [Concomitant]
     Active Substance: DARIDOREXANT
  9. DOXYCYCLINE HYCLATE [Concomitant]
     Active Substance: DOXYCYCLINE HYCLATE

REACTIONS (1)
  - Injection site pain [Unknown]
